FAERS Safety Report 25526724 (Version 1)
Quarter: 2025Q3

REPORT INFORMATION
  Report Type: Spontaneous
  Country: GB (occurrence: GB)
  Receive Date: 20250707
  Receipt Date: 20250707
  Transmission Date: 20251020
  Serious: Yes (Disabling, Other)
  Sender: GE HEALTHCARE
  Company Number: None

PATIENT

DRUGS (1)
  1. OMNIPAQUE [Suspect]
     Active Substance: IOHEXOL
     Indication: Diagnostic procedure
     Route: 065
     Dates: start: 20250606, end: 20250606

REACTIONS (14)
  - Nervous system disorder [Not Recovered/Not Resolved]
  - Meningitis aseptic [Not Recovered/Not Resolved]
  - Brain fog [Unknown]
  - Body temperature decreased [Unknown]
  - Dysphagia [Unknown]
  - Tachycardia [Unknown]
  - Inflammation [Unknown]
  - Vision blurred [Unknown]
  - Headache [Unknown]
  - Pain [Unknown]
  - Tremor [Unknown]
  - Rash [Unknown]
  - Fatigue [Unknown]
  - Asthenia [Unknown]

NARRATIVE: CASE EVENT DATE: 20250606
